FAERS Safety Report 9399889 (Version 1)
Quarter: 2013Q3

REPORT INFORMATION
  Report Type: Spontaneous
  Country: LU (occurrence: LU)
  Receive Date: 20130715
  Receipt Date: 20130715
  Transmission Date: 20140515
  Serious: Yes (Hospitalization)
  Sender: FDA-Public Use
  Company Number: LU-B.I. PHARMACEUTICALS,INC./RIDGEFIELD-2013-BL-00345BL

PATIENT
  Sex: Female

DRUGS (4)
  1. PRADAXA [Suspect]
     Indication: ATRIAL FIBRILLATION
     Dosage: 150 NR
     Dates: start: 201303
  2. EMCONCOR [Concomitant]
     Dosage: 5 NR
  3. NEXIAM [Concomitant]
  4. IRON [Concomitant]

REACTIONS (2)
  - Haemorrhage intracranial [Not Recovered/Not Resolved]
  - Hemiplegia [Not Recovered/Not Resolved]
